FAERS Safety Report 24786606 (Version 1)
Quarter: 2024Q4

REPORT INFORMATION
  Report Type: Spontaneous
  Country: US (occurrence: US)
  Receive Date: 20241230
  Receipt Date: 20241230
  Transmission Date: 20250115
  Serious: No
  Sender: CELLTRION
  Company Number: US-CELLTRION INC.-2024US009326

PATIENT

DRUGS (4)
  1. TRUXIMA [Suspect]
     Active Substance: RITUXIMAB-ABBS
     Indication: Thrombotic thrombocytopenic purpura
     Dosage: 896MG/250ML EVERY WEEK
     Route: 042
     Dates: start: 20240313
  2. INSULIN NOS [Concomitant]
     Active Substance: INSULIN NOS
  3. LEVOTHYROXINE [Concomitant]
     Active Substance: LEVOTHYROXINE
  4. METFORMIN [Concomitant]
     Active Substance: METFORMIN HYDROCHLORIDE

REACTIONS (1)
  - Off label use [Not Recovered/Not Resolved]

NARRATIVE: CASE EVENT DATE: 20240313
